FAERS Safety Report 4735914-6 (Version None)
Quarter: 2005Q3

REPORT INFORMATION
  Report Type: 
  Country: None (occurrence: None)
  Receive Date: 20050721
  Receipt Date: 20050525
  Transmission Date: 20060218
  Serious: No
  Sender: FDA-Public Use
  Company Number: 2005SP001016

PATIENT
  Age: 59 Year
  Sex: Female

DRUGS (5)
  1. LUNESTA [Suspect]
     Dosage: 3 MG; HS; ORAL
     Route: 048
     Dates: start: 20050427
  2. PAXIL [Concomitant]
  3. LISINOPRIL [Concomitant]
  4. ESTROGENS CONJUGATED [Concomitant]
  5. BEXTRA [Concomitant]

REACTIONS (3)
  - DRUG INEFFECTIVE [None]
  - INSOMNIA [None]
  - RESTLESSNESS [None]
